FAERS Safety Report 7048263-0 (Version None)
Quarter: 2010Q4

REPORT INFORMATION
  Report Type: 
  Country: None (occurrence: None)
  Receive Date: 20101015
  Receipt Date: 20101004
  Transmission Date: 20110411
  Serious: Yes (Other)
  Sender: FDA-Public Use
  Company Number: US-JNJCH-2010022505

PATIENT
  Age: 62 Year
  Sex: Female
  Weight: 88.5 kg

DRUGS (7)
  1. PRECISE EXTRA STRENGTH PAIN RELIEVING CREAM [Suspect]
     Indication: ARTHRITIS
     Dosage: TEXT:FINGERTIPFUL ONCE
     Route: 061
     Dates: start: 20101001, end: 20101001
  2. SYMBICORT [Concomitant]
     Indication: ASTHMA
     Dosage: TEXT:PRN
     Route: 065
  3. FEXOFENADINE HCL [Concomitant]
     Indication: HYPERSENSITIVITY
     Dosage: TEXT:180MG PRN
     Route: 065
  4. TYLENOL (CAPLET) [Concomitant]
     Indication: ARTHRITIS
     Dosage: TEXT:PRN
     Route: 065
  5. OXYBUTYNIN [Concomitant]
     Indication: BLADDER DISORDER
     Dosage: TEXT:5MG 1X A DAY
     Route: 065
  6. SINUS [Concomitant]
     Indication: SINUSITIS
     Dosage: TEXT:1X A DAY
     Route: 065
  7. BENADRYL [Concomitant]
     Indication: SINUSITIS
     Dosage: TEXT:25MG 1X DAY
     Route: 065

REACTIONS (4)
  - APPLICATION SITE ERYTHEMA [None]
  - APPLICATION SITE WARMTH [None]
  - ASTHMA [None]
  - COUGH [None]
